FAERS Safety Report 9502162 (Version 1)
Quarter: 2013Q3

REPORT INFORMATION
  Report Type: Report from Study
  Country: UY (occurrence: UY)
  Receive Date: 20130905
  Receipt Date: 20130905
  Transmission Date: 20140515
  Serious: Yes (Death)
  Sender: FDA-Public Use
  Company Number: UY-ROCHE-1271093

PATIENT
  Sex: Female

DRUGS (2)
  1. XELODA [Suspect]
     Indication: GASTROINTESTINAL CARCINOMA
     Dosage: 1500MG AM + 1000 MG PM
     Route: 048
     Dates: start: 20130703
  2. XELODA [Suspect]
     Indication: METASTASES TO LIVER

REACTIONS (1)
  - Death [Fatal]
